FAERS Safety Report 21880955 (Version 3)
Quarter: 2023Q2

REPORT INFORMATION
  Report Type: Spontaneous
  Country: CA (occurrence: CA)
  Receive Date: 20230118
  Receipt Date: 20230503
  Transmission Date: 20230721
  Serious: Yes (Hospitalization, Other)
  Sender: FDA-Public Use
  Company Number: CA-GILEAD-2023-0612751

PATIENT
  Age: 65 Year
  Sex: Male

DRUGS (15)
  1. YESCARTA [Suspect]
     Active Substance: AXICABTAGENE CILOLEUCEL
     Indication: Diffuse large B-cell lymphoma
     Dosage: UNK
     Route: 042
     Dates: start: 20221221, end: 20221221
  2. TOCILIZUMAB [Concomitant]
     Active Substance: TOCILIZUMAB
     Dosage: 720 MG ONCE
     Route: 042
     Dates: start: 20221226, end: 20221226
  3. TOCILIZUMAB [Concomitant]
     Active Substance: TOCILIZUMAB
     Dosage: 720 MG Q8H (3)
     Route: 042
     Dates: start: 20221227, end: 20221227
  4. KEPPRA [Concomitant]
     Active Substance: LEVETIRACETAM
     Dosage: 750 MG, BID, STARTED PRIOR TO CAR-T INFUSION DAY
     Route: 048
     Dates: end: 20221230
  5. DEXAMETHASONE [Concomitant]
     Active Substance: DEXAMETHASONE
     Dosage: 10 MG
     Route: 042
     Dates: start: 20221226, end: 20221226
  6. DEXAMETHASONE [Concomitant]
     Active Substance: DEXAMETHASONE
     Dosage: 10 MG, Q6H
     Route: 042
     Dates: start: 20221227, end: 20221228
  7. DEXAMETHASONE [Concomitant]
     Active Substance: DEXAMETHASONE
     Dosage: 6 MG, Q6H (PM)
     Route: 042
     Dates: start: 20221229, end: 20221229
  8. DEXAMETHASONE [Concomitant]
     Active Substance: DEXAMETHASONE
     Dosage: 1 MG, Q8H
     Route: 042
     Dates: start: 20230111, end: 20230111
  9. DEXAMETHASONE [Concomitant]
     Active Substance: DEXAMETHASONE
     Dosage: 1 MG, QID
     Route: 042
     Dates: start: 20230112, end: 20230112
  10. DEXAMETHASONE [Concomitant]
     Active Substance: DEXAMETHASONE
     Dosage: 1 MG, QD
     Route: 042
     Dates: start: 20230113, end: 20230113
  11. METHYLPREDNISOLONE [Concomitant]
     Active Substance: METHYLPREDNISOLONE
     Dosage: 1 G
     Route: 042
     Dates: start: 20221227, end: 20221227
  12. METHYLPREDNISOLONE [Concomitant]
     Active Substance: METHYLPREDNISOLONE
     Dosage: 500 MG Q12H
     Route: 042
     Dates: start: 20221230, end: 20221230
  13. METHYLPREDNISOLONE [Concomitant]
     Active Substance: METHYLPREDNISOLONE
     Dosage: 1 G Q12H (PM)
     Route: 042
     Dates: start: 20221230, end: 20221230
  14. METHYLPREDNISOLONE [Concomitant]
     Active Substance: METHYLPREDNISOLONE
     Dosage: 1 G Q12H
     Route: 042
     Dates: start: 20221231, end: 20230101
  15. METHYLPREDNISOLONE [Concomitant]
     Active Substance: METHYLPREDNISOLONE
     Dosage: 500 MG Q12H (PM)
     Route: 042
     Dates: start: 20230101, end: 20230101

REACTIONS (2)
  - Toxic epidermal necrolysis [Recovering/Resolving]
  - Immune effector cell-associated neurotoxicity syndrome [Unknown]

NARRATIVE: CASE EVENT DATE: 20221230
